FAERS Safety Report 14104132 (Version 1)
Quarter: 2017Q4

REPORT INFORMATION
  Report Type: Spontaneous
  Country: IT (occurrence: IT)
  Receive Date: 20171018
  Receipt Date: 20171018
  Transmission Date: 20180321
  Serious: Yes (Life-Threatening)
  Sender: FDA-Public Use
  Company Number: IT-SA-2017SA198688

PATIENT
  Sex: Female

DRUGS (3)
  1. BUSCOPAN [Suspect]
     Active Substance: BUTYLSCOPOLAMINE BROMIDE
     Indication: UTERINE CONTRACTIONS DURING PREGNANCY
     Route: 065
     Dates: start: 20170910, end: 20170910
  2. CLEXANE [Suspect]
     Active Substance: ENOXAPARIN SODIUM
     Route: 065
     Dates: start: 201612
  3. PROSTAGLANDINS [Concomitant]
     Active Substance: UNSPECIFIED INGREDIENT
     Dosage: 6 DOSAGE UNITS, ONE UNIT EVERY 2 HOURS
     Route: 048
     Dates: start: 20170910, end: 20170910

REACTIONS (3)
  - Uterine haemorrhage [Recovered/Resolved]
  - Off label use [Unknown]
  - Foetal exposure timing unspecified [Unknown]

NARRATIVE: CASE EVENT DATE: 20170911
